FAERS Safety Report 17995250 (Version 1)
Quarter: 2020Q3

REPORT INFORMATION
  Report Type: Spontaneous
  Country: CN (occurrence: CN)
  Receive Date: 20200708
  Receipt Date: 20200708
  Transmission Date: 20201103
  Serious: Yes (Other)
  Sender: FDA-Public Use
  Company Number: CN-BAYER-2020-137454

PATIENT
  Age: 47 Year
  Sex: Male

DRUGS (7)
  1. INLYTA [Concomitant]
     Active Substance: AXITINIB
     Indication: RENAL NEOPLASM
     Dosage: 1 DF, BID
     Route: 048
     Dates: start: 20200117
  2. INLYTA [Concomitant]
     Active Substance: AXITINIB
     Indication: RENAL CANCER
  3. NEXAVAR [Suspect]
     Active Substance: SORAFENIB
     Indication: RENAL CANCER
  4. PAIN RELIEVER [Concomitant]
  5. NEXAVAR [Suspect]
     Active Substance: SORAFENIB
     Indication: METASTASES TO BONE
     Dosage: UNK
     Route: 048
     Dates: start: 201905, end: 201912
  6. INLYTA [Concomitant]
     Active Substance: AXITINIB
     Indication: METASTASES TO BONE
  7. NEXAVAR [Suspect]
     Active Substance: SORAFENIB
     Indication: RENAL NEOPLASM

REACTIONS (2)
  - Renal cancer [None]
  - Diarrhoea [Recovered/Resolved]

NARRATIVE: CASE EVENT DATE: 201912
